FAERS Safety Report 26157528 (Version 1)
Quarter: 2025Q4

REPORT INFORMATION
  Report Type: Spontaneous
  Country: EU (occurrence: EU)
  Receive Date: 20251215
  Receipt Date: 20251215
  Transmission Date: 20260117
  Serious: Yes (Hospitalization)
  Sender: MYLAN
  Company Number: EU-I.R.I.S.-S25017315

PATIENT
  Age: 53 Year
  Sex: Male
  Weight: 114 kg

DRUGS (5)
  1. AMLODIPINE [Suspect]
     Active Substance: AMLODIPINE BESYLATE
     Indication: Hypertension
     Dosage: 5 MILLIGRAM, QD (5 MG, QD)
     Route: 061
  2. PERINDOPRIL [Suspect]
     Active Substance: PERINDOPRIL
     Indication: Hypertension
     Dosage: 10 MILLIGRAM, QD (10 MG, QD)
     Route: 061
  3. ATORVASTATIN [Suspect]
     Active Substance: ATORVASTATIN
     Indication: Hypercholesterolaemia
     Dosage: 40 MILLIGRAM, QD (40 MG, QD)
     Route: 061
  4. METFORMIN [Concomitant]
     Active Substance: METFORMIN HYDROCHLORIDE
     Indication: Type 2 diabetes mellitus
     Dosage: 1000 MILLIGRAM, QD (1000 MG, QD)
     Route: 061
  5. PENICILLIN [Concomitant]
     Active Substance: PENICILLIN
     Indication: Pneumonia
     Dosage: 5000000 INTERNATIONAL UNIT (5000000 IU, UNK)

REACTIONS (1)
  - Hypertension [Recovered/Resolved]
